FAERS Safety Report 5138783-8 (Version None)
Quarter: 2006Q4

REPORT INFORMATION
  Report Type: 
  Country: None (occurrence: None)
  Receive Date: 20061025
  Receipt Date: 20061025
  Transmission Date: 20070319
  Serious: No
  Sender: FDA-Public Use
  Company Number: None

PATIENT
  Age: 36 Year
  Sex: Male

DRUGS (28)
  1. ANTITHYMOCYTE GLOBULIN [Suspect]
     Dates: start: 20060202, end: 20060206
  2. LEVOFLOXACIN [Concomitant]
  3. VALACYCLOVIR [Concomitant]
  4. CYCLOSPORINE [Concomitant]
  5. PREDNISONE TAB [Concomitant]
  6. ALLOPURINOL [Concomitant]
  7. VORICONAZOLE [Concomitant]
  8. CEFTRIAXONE [Concomitant]
  9. IMIPENEM [Concomitant]
  10. CEFEPIME [Concomitant]
  11. ESOMEPRAZOLE MAGNESIUM [Concomitant]
  12. ACETAMINOPHEN [Concomitant]
  13. AMBIEN [Concomitant]
  14. MORPHINE [Concomitant]
  15. ALLOPURINOL [Concomitant]
  16. VANCOMYCIN [Concomitant]
  17. NEXIUM [Concomitant]
  18. BENADRYL [Concomitant]
  19. CASPOFUNGIN [Concomitant]
  20. POTASSIUM CHLORIDE [Concomitant]
  21. SODIUM CHLORIDE [Concomitant]
  22. MAGNESIUM SULFATE [Concomitant]
  23. PLATELETS AND PACKED RED BLOOD CELLS [Concomitant]
  24. DEXAMETHASONE TAB [Concomitant]
  25. METHYLPREDNISOLONE 4MG TAB [Concomitant]
  26. PHENERGAN [Concomitant]
  27. PROCHLORPERAZINE [Concomitant]
  28. HEPARIN [Concomitant]

REACTIONS (9)
  - ALANINE AMINOTRANSFERASE INCREASED [None]
  - ASPARTATE AMINOTRANSFERASE INCREASED [None]
  - BLOOD ALKALINE PHOSPHATASE INCREASED [None]
  - BLOOD BILIRUBIN INCREASED [None]
  - DIABETES MELLITUS [None]
  - EPIGASTRIC DISCOMFORT [None]
  - LIVER DISORDER [None]
  - NAUSEA [None]
  - VOMITING [None]
